FAERS Safety Report 7603302-0 (Version None)
Quarter: 2011Q3

REPORT INFORMATION
  Report Type: 
  Country: None (occurrence: None)
  Receive Date: 20110711
  Receipt Date: 20110711
  Transmission Date: 20111222
  Serious: Yes (Death)
  Sender: FDA-Public Use
  Company Number: None

PATIENT
  Age: 80 Year
  Sex: Male
  Weight: 84.3 kg

DRUGS (1)
  1. PRADAXA [Suspect]
     Indication: ATRIAL FIBRILLATION
     Dosage: PO
     Route: 048
     Dates: start: 20110624, end: 20110626

REACTIONS (13)
  - DISSEMINATED INTRAVASCULAR COAGULATION [None]
  - PAIN [None]
  - LACERATION [None]
  - GASTRIC DISORDER [None]
  - DIZZINESS [None]
  - POST PROCEDURAL HAEMORRHAGE [None]
  - CARDIAC FAILURE CONGESTIVE [None]
  - ABDOMINAL PAIN [None]
  - CARDIOPULMONARY FAILURE [None]
  - FALL [None]
  - INJURY [None]
  - SPLENIC HAEMORRHAGE [None]
  - COAGULOPATHY [None]
